FAERS Safety Report 8834242 (Version 1)
Quarter: 2012Q4

REPORT INFORMATION
  Report Type: 
  Country: US (occurrence: US)
  Receive Date: 20121010
  Receipt Date: 20121010
  Transmission Date: 20130627
  Serious: Yes (Other)
  Sender: FDA-Public Use
  Company Number: US-ASTRAZENECA-2012SE75617

PATIENT

DRUGS (2)
  1. SEROQUEL [Suspect]
     Route: 048
  2. GEODON [Suspect]
     Route: 065

REACTIONS (1)
  - Electrocardiogram QT prolonged [Unknown]
